FAERS Safety Report 4799952-X (Version None)
Quarter: 2005Q4

REPORT INFORMATION
  Report Type: 
  Country: None (occurrence: None)
  Receive Date: 20051013
  Receipt Date: 20050929
  Transmission Date: 20060501
  Serious: Yes (Other)
  Sender: FDA-Public Use
  Company Number: B0395597A

PATIENT
  Age: 36 Year
  Sex: Male

DRUGS (11)
  1. ALKERAN [Suspect]
     Indication: NON-HODGKIN'S LYMPHOMA
     Dosage: 140 MG/M2 CYCLIC
  2. CARMUSTINE [Suspect]
     Indication: NON-HODGKIN'S LYMPHOMA
     Dosage: 300 MG/M2/ CYCLIC
  3. CYTARABINE [Suspect]
     Indication: NON-HODGKIN'S LYMPHOMA
     Dosage: 200 MG/M2 CYCLIC
  4. ETOPOSIDE [Suspect]
     Indication: NON-HODGKIN'S LYMPHOMA
     Dosage: 200 MG/ M2 CYCLIC
  5. QUINOLONE [Concomitant]
  6. ACYCLOVIR [Concomitant]
  7. CO-TRIMOXAZOLE [Concomitant]
  8. GRANULOCYTE COL. STIM. FACT [Concomitant]
  9. ZIDOVUDINE [Concomitant]
  10. LAMIVUDINE [Concomitant]
  11. EFAVIRENZ [Concomitant]

REACTIONS (4)
  - HERPES SIMPLEX [None]
  - MUCOSAL INFLAMMATION [None]
  - PYREXIA [None]
  - TRANSAMINASES INCREASED [None]
